FAERS Safety Report 16827670 (Version 1)
Quarter: 2019Q3

REPORT INFORMATION
  Report Type: Spontaneous
  Country: US (occurrence: US)
  Receive Date: 20190919
  Receipt Date: 20190919
  Transmission Date: 20191005
  Serious: No
  Sender: FDA-Public Use
  Company Number: US-009507513-1909USA007270

PATIENT
  Age: 56 Year
  Sex: Male

DRUGS (2)
  1. INVANZ [Suspect]
     Active Substance: ERTAPENEM SODIUM
     Indication: HIDRADENITIS
     Dosage: UNK
     Route: 042
  2. BLOOD CELLS, RED [Concomitant]
     Active Substance: HUMAN RED BLOOD CELL
     Dosage: 1 UNIT

REACTIONS (1)
  - Off label use [Unknown]
